FAERS Safety Report 15094246 (Version 1)
Quarter: 2018Q2

REPORT INFORMATION
  Report Type: Report from Study
  Country: CO (occurrence: CO)
  Receive Date: 20180630
  Receipt Date: 20180630
  Transmission Date: 20180711
  Serious: Yes (Hospitalization, Other)
  Sender: FDA-Public Use
  Company Number: CO-UCBSA-2018028773

PATIENT
  Age: 20 Year
  Sex: Male
  Weight: 83 kg

DRUGS (9)
  1. LEVETIRACETAM. [Concomitant]
     Active Substance: LEVETIRACETAM
     Indication: EPILEPSY
     Dosage: 1000 MG, ONCE DAILY (QD)
     Route: 048
     Dates: start: 20170621
  2. CLONAZEPAM. [Concomitant]
     Active Substance: CLONAZEPAM
     Indication: EPILEPSY
     Dosage: 2 MG, ONCE DAILY (QD)
     Route: 048
     Dates: start: 20170621
  3. TRAZODONE [Concomitant]
     Active Substance: TRAZODONE HYDROCHLORIDE
     Indication: EPILEPSY
     Dosage: 50 MG, ONCE DAILY (QD)
     Route: 048
     Dates: start: 20170621
  4. ATORVASTATIN [Concomitant]
     Active Substance: ATORVASTATIN
     Indication: EPILEPSY
     Dosage: 20 MG, ONCE DAILY (QD)
     Route: 048
     Dates: start: 20170621
  5. LACOSAMIDE. [Suspect]
     Active Substance: LACOSAMIDE
     Indication: EPILEPSY
     Dosage: 200 MG, 3X/DAY (TID)
     Route: 048
     Dates: start: 20141219
  6. VIGABATRIN. [Concomitant]
     Active Substance: VIGABATRIN
     Indication: EPILEPSY
     Dosage: 500 MG, 3X/DAY (TID)
     Route: 048
     Dates: start: 20170621
  7. ARIPIPRAZOLE. [Concomitant]
     Active Substance: ARIPIPRAZOLE
     Indication: EPILEPSY
     Dosage: 15 MG, 3X/DAY (TID)
     Route: 048
     Dates: start: 20170621
  8. RISPERIDONE. [Concomitant]
     Active Substance: RISPERIDONE
     Indication: EPILEPSY
     Dosage: 10 MG, ONCE DAILY (QD)
     Route: 048
     Dates: start: 20170621
  9. IMIPRAMINE [Concomitant]
     Active Substance: IMIPRAMINE
     Indication: EPILEPSY
     Dosage: 25 MG, 3X/DAY (TID)
     Route: 048
     Dates: start: 20170621

REACTIONS (2)
  - Seizure [Recovered/Resolved]
  - Off label use [Unknown]

NARRATIVE: CASE EVENT DATE: 20141219
